FAERS Safety Report 4832778-7 (Version None)
Quarter: 2005Q4

REPORT INFORMATION
  Report Type: 
  Country: None (occurrence: None)
  Receive Date: 20051121
  Receipt Date: 20050707
  Transmission Date: 20060501
  Serious: Yes (Life-Threatening)
  Sender: FDA-Public Use
  Company Number: PHEH2005US07535

PATIENT
  Age: 33 Year
  Sex: Male
  Weight: 77.097 kg

DRUGS (24)
  1. ZELNORM [Suspect]
     Indication: CONSTIPATION
     Dosage: 6 MG, BID
     Route: 048
     Dates: start: 20050513, end: 20050517
  2. PROGRAF [Suspect]
     Indication: IMMUNOSUPPRESSION
     Dosage: 3 MG, BID
     Route: 048
     Dates: start: 20050423
  3. THEOPHYLLINE [Concomitant]
     Dates: start: 20050401
  4. MARINOL [Concomitant]
     Dates: start: 20050506
  5. VALCYTE [Concomitant]
     Dates: start: 20050505
  6. LISINOPRIL [Concomitant]
     Dosage: 20 MG, BID
     Route: 048
     Dates: start: 20050502
  7. LASIX [Concomitant]
     Dosage: 40 MG, QD
     Route: 048
     Dates: start: 20030101
  8. TYLENOL (CAPLET) [Concomitant]
     Dosage: 3 G, QD
  9. PREDNISONE [Concomitant]
     Indication: IMMUNOSUPPRESSION
     Dosage: 5  X 5 MG/BID
  10. CELLCEPT [Concomitant]
  11. MAGNESIUM SULFATE [Concomitant]
     Route: 042
  12. BACITRACIN [Concomitant]
     Route: 061
     Dates: end: 20050513
  13. DRONABINOL [Concomitant]
  14. ESCITALOPRAM OXALATE [Concomitant]
  15. PANTOPRAZOLE [Concomitant]
  16. LACTULOSE [Concomitant]
  17. CYCLOBENZAPRINE HCL [Concomitant]
  18. MAGNESIUM OXIDE [Concomitant]
  19. SODIUM CHLORIDE [Concomitant]
     Route: 042
  20. NYSTATIN [Concomitant]
     Route: 048
  21. ALENDRONATE SODIUM [Concomitant]
  22. IRON IN OTHER COMBINATIONS [Concomitant]
     Route: 042
  23. DARBEPOETIN ALFA [Concomitant]
     Route: 042
  24. LORAZEPAM [Concomitant]
     Dosage: 2 MG, PRN

REACTIONS (4)
  - COMPUTERISED TOMOGRAM ABNORMAL [None]
  - CONSTIPATION [None]
  - ENCEPHALOPATHY [None]
  - IMMUNOSUPPRESSANT DRUG LEVEL INCREASED [None]
